FAERS Safety Report 8653611 (Version 3)
Quarter: 2012Q4

REPORT INFORMATION
  Report Type: Spontaneous
  Country: US (occurrence: None)
  Receive Date: 20120621
  Receipt Date: 20120912
  Transmission Date: 20130627
  Serious: Yes (Other)
  Sender: FDA-Public Use
  Company Number: US-1192726

PATIENT
  Age: 63 Year
  Sex: Female

DRUGS (1)
  1. PROPYLENE GLYCOL [Suspect]
     Dosage: (OPHTHALMIC)
     Route: 047
     Dates: start: 2012

REACTIONS (2)
  - Eye injury [None]
  - Corneal abrasion [None]
